FAERS Safety Report 5378141-4 (Version None)
Quarter: 2007Q3

REPORT INFORMATION
  Report Type: 
  Country: None (occurrence: None)
  Receive Date: 20070705
  Receipt Date: 20070625
  Transmission Date: 20080115
  Serious: Yes (Hospitalization, Other)
  Sender: FDA-Public Use
  Company Number: PHBS2007JP07347

PATIENT
  Age: 73 Year
  Sex: Female

DRUGS (3)
  1. ZOMETA [Suspect]
     Indication: METASTASES TO BONE
     Dosage: 4 MG, UNK
     Dates: start: 20060401, end: 20070301
  2. FEMARA [Concomitant]
     Dosage: 2.5 MG/DAY
     Route: 048
     Dates: start: 20060401
  3. AREDIA [Suspect]
     Indication: METASTASES TO BONE
     Dates: start: 20030301, end: 20060401

REACTIONS (13)
  - BIOPSY [None]
  - BONE DISORDER [None]
  - DENTAL TREATMENT [None]
  - EXCESSIVE GRANULATION TISSUE [None]
  - GINGIVAL BLEEDING [None]
  - GINGIVAL SWELLING [None]
  - GINGIVITIS [None]
  - HYPERBARIC OXYGEN THERAPY [None]
  - IMPAIRED HEALING [None]
  - METASTASES TO BONE [None]
  - OSTEONECROSIS [None]
  - PURULENT DISCHARGE [None]
  - TOOTH EXTRACTION [None]
